FAERS Safety Report 21069305 (Version 1)
Quarter: 2022Q3

REPORT INFORMATION
  Report Type: Spontaneous
  Country: US (occurrence: None)
  Receive Date: 20220711
  Receipt Date: 20220711
  Transmission Date: 20221026
  Serious: No
  Sender: FDA-Public Use
  Company Number: None

PATIENT
  Age: 47 Year
  Sex: Female
  Weight: 97.4 kg

DRUGS (2)
  1. NIRMATRELVIR\RITONAVIR [Suspect]
     Active Substance: NIRMATRELVIR\RITONAVIR
     Indication: COVID-19
  2. COSMETICS [Suspect]
     Active Substance: COSMETICS

REACTIONS (4)
  - Drug hypersensitivity [None]
  - Hypoaesthesia [None]
  - Swelling face [None]
  - Rash [None]

NARRATIVE: CASE EVENT DATE: 20220709
